FAERS Safety Report 7620179-8 (Version None)
Quarter: 2011Q3

REPORT INFORMATION
  Report Type: 
  Country: None (occurrence: None)
  Receive Date: 20110719
  Receipt Date: 20110705
  Transmission Date: 20111222
  Serious: Yes (Other)
  Sender: FDA-Public Use
  Company Number: PHHY2011BR61208

PATIENT
  Sex: Female

DRUGS (10)
  1. TRAVODIMI [Suspect]
     Dosage: 5 MG, UNK
  2. EXPERIDIMA [Suspect]
     Dosage: 50 MG, UNK
  3. NEOMYCIN [Suspect]
     Dosage: 5 MG, UNK
  4. PANTONALOL [Suspect]
     Dosage: 3 DF, (40 MG) DAILY
  5. CAPTOPRIL [Suspect]
     Dosage: 6 DF, 25 MG DAILY
  6. DIOSMIN [Suspect]
     Dosage: 450 MG, UNK
  7. SUAPIZ SOAP [Suspect]
     Dosage: UNK UKN, UNK
  8. DIPROVINIDI [Suspect]
     Dosage: 150 MG, UNK
  9. DIOVAN [Suspect]
     Dosage: UNK UKN, UNK
  10. DIOVAN [Suspect]
     Dosage: 320 MG, UNK

REACTIONS (4)
  - HELMINTHIC INFECTION [None]
  - FURUNCLE [None]
  - VARICOSE VEIN [None]
  - OPEN WOUND [None]
